FAERS Safety Report 25607731 (Version 1)
Quarter: 2025Q3

REPORT INFORMATION
  Report Type: Spontaneous
  Country: BR (occurrence: BR)
  Receive Date: 20250725
  Receipt Date: 20250725
  Transmission Date: 20251021
  Serious: Yes (Other)
  Sender: TAKEDA
  Company Number: BR-TAKEDA-2025TUS064734

PATIENT
  Sex: Female
  Weight: 60 kg

DRUGS (5)
  1. QDENGA [Suspect]
     Active Substance: DENGUE FEVER VACCINE LIVE R 4V (VERO)
     Indication: Dengue fever immunisation
  2. DEXILANT [Suspect]
     Active Substance: DEXLANSOPRAZOLE
     Indication: Gastrooesophageal reflux disease
  3. METOPROLOL [Concomitant]
     Active Substance: METOPROLOL
     Indication: Arrhythmia
  4. RIVOTRIL [Concomitant]
     Active Substance: CLONAZEPAM
     Indication: Sleep disorder
  5. Espinheira santa [Concomitant]

REACTIONS (5)
  - Nephrolithiasis [Unknown]
  - Dengue fever [Unknown]
  - Dysbiosis [Not Recovered/Not Resolved]
  - Gastrooesophageal reflux disease [Unknown]
  - Pharyngitis [Unknown]
